FAERS Safety Report 20711108 (Version 1)
Quarter: 2022Q2

REPORT INFORMATION
  Report Type: Spontaneous
  Country: US (occurrence: US)
  Receive Date: 20220414
  Receipt Date: 20220414
  Transmission Date: 20220721
  Serious: Yes (Other)
  Sender: FDA-Public Use
  Company Number: US-JNJFOC-20220419248

PATIENT
  Age: 27 Year
  Sex: Male

DRUGS (3)
  1. VELETRI [Suspect]
     Active Substance: EPOPROSTENOL
     Indication: Pulmonary arterial hypertension
     Dosage: 3-5 NG/KG
     Route: 042
  2. VELETRI [Suspect]
     Active Substance: EPOPROSTENOL
     Route: 042
  3. NOREPINEPHRINE [Concomitant]
     Active Substance: NOREPINEPHRINE

REACTIONS (4)
  - Cardiogenic shock [Recovered/Resolved]
  - Pulmonary arterial hypertension [Recovered/Resolved]
  - Product administration interrupted [Unknown]
  - Underdose [Unknown]
